FAERS Safety Report 20443716 (Version 2)
Quarter: 2022Q1

REPORT INFORMATION
  Report Type: Report from Study
  Country: CA (occurrence: None)
  Receive Date: 20220208
  Receipt Date: 20220309
  Transmission Date: 20220424
  Serious: Yes (Other)
  Sender: FDA-Public Use
  Company Number: 2022A055896

PATIENT
  Sex: Male

DRUGS (2)
  1. CALQUENCE [Suspect]
     Active Substance: ACALABRUTINIB
     Indication: Chronic lymphocytic leukaemia
     Route: 048
     Dates: start: 20220128
  2. FENTANYL [Concomitant]
     Active Substance: FENTANYL
     Route: 065

REACTIONS (4)
  - Loss of consciousness [Unknown]
  - Dyspnoea [Unknown]
  - Drug intolerance [Unknown]
  - Asthenia [Unknown]
